FAERS Safety Report 8467678 (Version 3)
Quarter: 2012Q4

REPORT INFORMATION
  Report Type: 
  Country: JP (occurrence: JP)
  Receive Date: 20120320
  Receipt Date: 20120907
  Transmission Date: 20130627
  Serious: Yes (Other)
  Sender: FDA-Public Use
  Company Number: JP-EISAI INC-E2090-02035-SPO-JP

PATIENT
  Age: 10 Year
  Sex: Female

DRUGS (5)
  1. ZONISAMIDE [Suspect]
     Indication: EPILEPSY
     Route: 048
     Dates: start: 19960224
  2. DEPAKENE [Suspect]
     Indication: EPILEPSY
     Route: 048
     Dates: start: 19930518
  3. PHENYTOIN SODIUM [Suspect]
     Indication: EPILEPSY
     Route: 048
     Dates: start: 19930116, end: 20090930
  4. PHENOBARBITAL [Concomitant]
     Indication: EPILEPSY
     Route: 048
     Dates: start: 19921005, end: 19930518
  5. PHENOBARBITAL [Concomitant]
     Route: 048
     Dates: start: 19941025, end: 19971202

REACTIONS (5)
  - Hypothyroidism [Recovered/Resolved]
  - Failure to thrive [Recovered/Resolved]
  - Hypothyroidism [Recovered/Resolved]
  - Cerebral atrophy [None]
  - Febrile convulsion [None]
